FAERS Safety Report 9185904 (Version 1)
Quarter: 2013Q1

REPORT INFORMATION
  Report Type: Spontaneous
  Country: CO (occurrence: CO)
  Receive Date: 20130325
  Receipt Date: 20130325
  Transmission Date: 20140127
  Serious: Yes (Other)
  Sender: FDA-Public Use
  Company Number: CO-AMGEN-COLSP2013019049

PATIENT
  Age: 58 Year
  Sex: Female

DRUGS (9)
  1. ENBREL [Suspect]
     Indication: RHEUMATOID ARTHRITIS
     Dosage: 50 MG, WEEKLY
     Route: 058
     Dates: start: 2011
  2. METHOTREXATE [Suspect]
     Indication: RHEUMATOID ARTHRITIS
     Dosage: 8 TABLETS OF 2.5MG, WEEKLY (ON SATURDAY)
     Route: 048
     Dates: start: 2011
  3. METHOTREXATE [Suspect]
     Dosage: 6 TABLETS OF 2.5MG, WEEKLY (ON SATURDAY)
     Route: 048
  4. OMEPRAZOL                          /00661201/ [Concomitant]
     Indication: GASTRITIS
     Dosage: 20 MG, 1X/DAY
     Route: 048
     Dates: start: 2011
  5. FOLIC ACID [Concomitant]
     Dosage: 1 MG, 1X/DAY
     Route: 048
     Dates: start: 2011
  6. LOSARTAN [Concomitant]
     Dosage: 50 MG, UNK
     Route: 065
     Dates: start: 2011
  7. ASA [Concomitant]
     Indication: ANGIOPATHY
     Dosage: 100 MG, UNK
     Dates: start: 2011
  8. AMLODIPINE [Concomitant]
     Dosage: 5 MG, UNK
     Route: 065
     Dates: start: 2012
  9. ATORVASTATIN [Concomitant]
     Indication: BLOOD CHOLESTEROL
     Dosage: 40 MG, UNK
     Route: 065
     Dates: start: 201212

REACTIONS (4)
  - American trypanosomiasis [Not Recovered/Not Resolved]
  - Hypertension [Not Recovered/Not Resolved]
  - Drug intolerance [Not Recovered/Not Resolved]
  - Decreased appetite [Not Recovered/Not Resolved]
